FAERS Safety Report 21085898 (Version 1)
Quarter: 2022Q3

REPORT INFORMATION
  Report Type: Spontaneous
  Country: FR (occurrence: FR)
  Receive Date: 20220715
  Receipt Date: 20220715
  Transmission Date: 20221026
  Serious: No
  Sender: FDA-Public Use
  Company Number: FR-ALKEM LABORATORIES LIMITED-FR-ALKEM-2022-04872

PATIENT
  Age: 66 Year
  Sex: Female

DRUGS (1)
  1. DRONABINOL [Suspect]
     Active Substance: DRONABINOL
     Indication: Product used for unknown indication
     Dosage: 7.5 MILLIGRAM, TID (3 TIMES DAILY)
     Route: 065
     Dates: start: 20220307, end: 20220330

REACTIONS (4)
  - Nausea [Unknown]
  - Vertigo [Unknown]
  - Drug ineffective [Unknown]
  - Inappropriate schedule of product administration [Unknown]

NARRATIVE: CASE EVENT DATE: 20220301
